FAERS Safety Report 14712289 (Version 2)
Quarter: 2018Q2

REPORT INFORMATION
  Report Type: Report from Study
  Country: None (occurrence: US)
  Receive Date: 20180404
  Receipt Date: 20180614
  Transmission Date: 20180711
  Serious: Yes (Other)
  Sender: FDA-Public Use
  Company Number: US-ABBVIE-17K-163-2190438-00

PATIENT
  Age: 68 Year
  Sex: Male

DRUGS (1)
  1. HUMIRA [Suspect]
     Active Substance: ADALIMUMAB
     Indication: PSORIASIS
     Route: 058

REACTIONS (9)
  - Psoriasis [Unknown]
  - Post procedural infection [Unknown]
  - Stress [Unknown]
  - Arthralgia [Unknown]
  - Retinal tear [Not Recovered/Not Resolved]
  - Retinal detachment [Unknown]
  - Retinal disorder [Not Recovered/Not Resolved]
  - Psoriasis [Recovered/Resolved]
  - Psoriasis [Recovered/Resolved]

NARRATIVE: CASE EVENT DATE: 2017
